FAERS Safety Report 8119327-5 (Version None)
Quarter: 2012Q1

REPORT INFORMATION
  Report Type: 
  Country: None (occurrence: None)
  Receive Date: 20120207
  Receipt Date: 20120131
  Transmission Date: 20120608
  Serious: Yes (Death)
  Sender: FDA-Public Use
  Company Number: US-MILLENNIUM PHARMACEUTICALS, INC.-2011-06364

PATIENT

DRUGS (2)
  1. TEMODAR [Suspect]
     Indication: MALIGNANT GLIOMA
     Dosage: 75 MG/M2, CYCLIC
     Route: 048
  2. VELCADE [Suspect]
     Dosage: 1.7 MG/M2, CYCLIC
     Route: 042

REACTIONS (1)
  - DEATH [None]
